FAERS Safety Report 9178038 (Version 2)
Quarter: 2013Q3

REPORT INFORMATION
  Report Type: Other
  Country: US (occurrence: US)
  Receive Date: 20130321
  Receipt Date: 20130917
  Transmission Date: 20140515
  Serious: Yes (Death, Hospitalization)
  Sender: FDA-Public Use
  Company Number: US-BRISTOL-MYERS SQUIBB COMPANY-18701888

PATIENT
  Age: 39 Year
  Sex: Male

DRUGS (1)
  1. METFORMIN HCL [Suspect]
     Dosage: METFORMIN 1000MG TABLET?1 DF:1 1000MG TAB

REACTIONS (7)
  - Cardiac arrest [Fatal]
  - Renal failure [Unknown]
  - Loss of consciousness [Unknown]
  - Acute respiratory distress syndrome [Unknown]
  - Transaminases increased [Unknown]
  - Lactic acidosis [Unknown]
  - Intentional overdose [Unknown]
